FAERS Safety Report 23189729 (Version 12)
Quarter: 2025Q1

REPORT INFORMATION
  Report Type: Spontaneous
  Country: US (occurrence: US)
  Receive Date: 20231116
  Receipt Date: 20250304
  Transmission Date: 20250408
  Serious: Yes (Other)
  Sender: BLUEPRINT MEDICINES
  Company Number: US-Blueprint Medicines Corporation-SP-US-2023-001791

PATIENT
  Age: 77 Year
  Sex: Male

DRUGS (7)
  1. AYVAKIT [Suspect]
     Active Substance: AVAPRITINIB
     Indication: Systemic mastocytosis
     Route: 048
     Dates: start: 20230830
  2. AYVAKIT [Suspect]
     Active Substance: AVAPRITINIB
     Indication: Indolent systemic mastocytosis
     Route: 048
     Dates: start: 20230829
  3. AYVAKIT [Suspect]
     Active Substance: AVAPRITINIB
     Route: 065
     Dates: start: 20230830
  4. AYVAKIT [Suspect]
     Active Substance: AVAPRITINIB
     Route: 065
     Dates: start: 20230830
  5. AYVAKIT [Suspect]
     Active Substance: AVAPRITINIB
     Route: 048
     Dates: start: 20230830
  6. AYVAKIT [Suspect]
     Active Substance: AVAPRITINIB
     Route: 048
     Dates: start: 20240616
  7. CALCIUM\CHOLECALCIFEROL [Concomitant]
     Active Substance: CALCIUM\CHOLECALCIFEROL
     Indication: Product used for unknown indication
     Route: 065

REACTIONS (27)
  - Eye operation [Unknown]
  - Lens dislocation [Unknown]
  - COVID-19 [Unknown]
  - Chest pain [Unknown]
  - Renal disorder [Not Recovered/Not Resolved]
  - Palpitations [Unknown]
  - Joint swelling [Not Recovered/Not Resolved]
  - Periorbital swelling [Unknown]
  - Blepharospasm [Not Recovered/Not Resolved]
  - Skin discolouration [Not Recovered/Not Resolved]
  - Face oedema [Unknown]
  - Somnolence [Not Recovered/Not Resolved]
  - Eye swelling [Unknown]
  - Eye discharge [Not Recovered/Not Resolved]
  - Eye disorder [Not Recovered/Not Resolved]
  - Lacrimation increased [Unknown]
  - Insomnia [Not Recovered/Not Resolved]
  - Dry eye [Unknown]
  - Hyperhidrosis [Unknown]
  - Rash [Unknown]
  - Arthropathy [Not Recovered/Not Resolved]
  - Gait disturbance [Not Recovered/Not Resolved]
  - Dry skin [Not Recovered/Not Resolved]
  - Skin fissures [Not Recovered/Not Resolved]
  - Vision blurred [Unknown]
  - Tooth restoration [Unknown]
  - Nasopharyngitis [Not Recovered/Not Resolved]

NARRATIVE: CASE EVENT DATE: 20231201
